FAERS Safety Report 4587401-6 (Version None)
Quarter: 2005Q1

REPORT INFORMATION
  Report Type: 
  Country: None (occurrence: None)
  Receive Date: 20050218
  Receipt Date: 20050208
  Transmission Date: 20050727
  Serious: Yes (Other)
  Sender: FDA-Public Use
  Company Number: US-JNJFOC-20050101519

PATIENT
  Sex: Female
  Weight: 124.74 kg

DRUGS (4)
  1. REMICADE [Suspect]
     Indication: RELAPSING POLYCHONDRITIS
     Route: 042
  2. PREDNISONE [Concomitant]
  3. NEORAL [Concomitant]
  4. ACTONEL [Concomitant]

REACTIONS (1)
  - RELAPSING POLYCHONDRITIS [None]
